FAERS Safety Report 24644399 (Version 3)
Quarter: 2025Q1

REPORT INFORMATION
  Report Type: Spontaneous
  Country: GR (occurrence: GR)
  Receive Date: 20241120
  Receipt Date: 20250118
  Transmission Date: 20250409
  Serious: Yes (Other)
  Sender: CELLTRION
  Company Number: GR-AMGEN-GRCSP2024098017

PATIENT

DRUGS (12)
  1. BEVACIZUMAB [Suspect]
     Active Substance: BEVACIZUMAB
     Indication: Cholangiocarcinoma
     Route: 065
  2. BEVACIZUMAB [Suspect]
     Active Substance: BEVACIZUMAB
     Indication: Hepatocellular carcinoma
  3. ATEZOLIZUMAB [Suspect]
     Active Substance: ATEZOLIZUMAB
     Indication: Mixed hepatocellular cholangiocarcinoma
  4. ATEZOLIZUMAB [Suspect]
     Active Substance: ATEZOLIZUMAB
     Indication: Hepatocellular carcinoma
  5. ATEZOLIZUMAB [Concomitant]
     Active Substance: ATEZOLIZUMAB
     Indication: Cholangiocarcinoma
     Route: 065
  6. ATEZOLIZUMAB [Concomitant]
     Active Substance: ATEZOLIZUMAB
     Indication: Hepatocellular carcinoma
  7. GEMCITABINE [Concomitant]
     Active Substance: GEMCITABINE
     Indication: Cholangiocarcinoma
     Route: 065
  8. GEMCITABINE [Concomitant]
     Active Substance: GEMCITABINE
     Indication: Hepatocellular carcinoma
  9. CISPLATIN [Concomitant]
     Active Substance: CISPLATIN
     Indication: Cholangiocarcinoma
     Route: 065
  10. CISPLATIN [Concomitant]
     Active Substance: CISPLATIN
     Indication: Hepatocellular carcinoma
  11. FLUOROURACIL\IRINOTECAN\LEUCOVORIN [Concomitant]
     Active Substance: FLUOROURACIL\IRINOTECAN\LEUCOVORIN
     Indication: Cholangiocarcinoma
     Route: 065
  12. FLUOROURACIL\IRINOTECAN\LEUCOVORIN [Concomitant]
     Active Substance: FLUOROURACIL\IRINOTECAN\LEUCOVORIN
     Indication: Hepatocellular carcinoma

REACTIONS (7)
  - Mesangioproliferative glomerulonephritis [Unknown]
  - End stage renal disease [Unknown]
  - Cholangiocarcinoma [Recovered/Resolved]
  - Hepatocellular carcinoma [Recovered/Resolved]
  - Pulmonary oedema [Unknown]
  - Nephrotic syndrome [Unknown]
  - Off label use [Unknown]
